FAERS Safety Report 12338647 (Version 3)
Quarter: 2016Q4

REPORT INFORMATION
  Report Type: Spontaneous
  Country: US (occurrence: US)
  Receive Date: 20160505
  Receipt Date: 20161020
  Transmission Date: 20170207
  Serious: No
  Sender: FDA-Public Use
  Company Number: US-GLAXOSMITHKLINE-US2016GSK059250

PATIENT
  Age: 50 Year
  Sex: Male

DRUGS (3)
  1. TANZEUM [Suspect]
     Active Substance: ALBIGLUTIDE
     Indication: TYPE 2 DIABETES MELLITUS
     Dosage: 50 MG, WE
     Route: 042
     Dates: start: 201601
  2. TANZEUM [Suspect]
     Active Substance: ALBIGLUTIDE
     Dosage: 50 MG, WE
     Route: 042
     Dates: start: 201602
  3. TANZEUM [Suspect]
     Active Substance: ALBIGLUTIDE
     Dosage: 50 MG, WE
     Route: 042
     Dates: start: 201602

REACTIONS (9)
  - Exposure via skin contact [Unknown]
  - Circumstance or information capable of leading to medication error [Unknown]
  - Intercepted drug administration error [Unknown]
  - Drug dose omission [Unknown]
  - Device use error [Unknown]
  - Accidental exposure to product [Unknown]
  - Increased appetite [Unknown]
  - Incorrect product storage [Unknown]
  - Product preparation error [Unknown]

NARRATIVE: CASE EVENT DATE: 20160424
